FAERS Safety Report 20291397 (Version 1)
Quarter: 2022Q1

REPORT INFORMATION
  Report Type: Spontaneous
  Country: US (occurrence: US)
  Receive Date: 20220104
  Receipt Date: 20220104
  Transmission Date: 20220423
  Serious: No
  Sender: FDA-Public Use
  Company Number: US-MYLANLABS-2021M1091337

PATIENT
  Sex: Female
  Weight: 89.81 kg

DRUGS (1)
  1. SCOPOLAMINE [Suspect]
     Active Substance: SCOPOLAMINE
     Indication: Vestibular disorder
     Dosage: 1 MILLIGRAM, QD
     Route: 062

REACTIONS (2)
  - Asthenia [Recovered/Resolved]
  - Product adhesion issue [Unknown]
